FAERS Safety Report 11582157 (Version 1)
Quarter: 2015Q4

REPORT INFORMATION
  Report Type: Report from Study
  Country: US (occurrence: US)
  Receive Date: 20151001
  Receipt Date: 20151001
  Transmission Date: 20160304
  Serious: No
  Sender: FDA-Public Use
  Company Number: US-AMGEN-USASL2015100958

PATIENT
  Age: 67 Year
  Sex: Female

DRUGS (1)
  1. ENBREL [Suspect]
     Active Substance: ETANERCEPT
     Indication: RHEUMATOID ARTHRITIS
     Dosage: UNK
     Route: 065
     Dates: start: 20050301

REACTIONS (7)
  - Injection site extravasation [Unknown]
  - Joint swelling [Not Recovered/Not Resolved]
  - Injection site pain [Unknown]
  - Arthralgia [Not Recovered/Not Resolved]
  - Knee operation [Unknown]
  - Injection site vesicles [Unknown]
  - Wrong technique in product usage process [Unknown]

NARRATIVE: CASE EVENT DATE: 2010
